FAERS Safety Report 16036659 (Version 1)
Quarter: 2019Q1

REPORT INFORMATION
  Report Type: Spontaneous
  Country: US (occurrence: US)
  Receive Date: 20190305
  Receipt Date: 20190305
  Transmission Date: 20190418
  Serious: No
  Sender: FDA-Public Use
  Company Number: US-IMPAX LABORATORIES, LLC-2018-IPXL-03142

PATIENT
  Age: 65 Year
  Sex: Female

DRUGS (1)
  1. RYTARY [Suspect]
     Active Substance: CARBIDOPA\LEVODOPA
     Indication: PARKINSON^S DISEASE
     Dosage: 48.75/195 MG,  3 CAPSULES, FOUR TIMES DAILY AT 8AM, 1PM, 5PM AND 10PM
     Route: 065

REACTIONS (2)
  - Abdominal discomfort [Unknown]
  - Hypophagia [Unknown]
